FAERS Safety Report 6627813-X (Version None)
Quarter: 2010Q1

REPORT INFORMATION
  Report Type: 
  Country: None (occurrence: None)
  Receive Date: 20100311
  Receipt Date: 20100226
  Transmission Date: 20100710
  Serious: No
  Sender: FDA-Public Use
  Company Number: JP-JNJFOC-20100300111

PATIENT
  Sex: Male

DRUGS (2)
  1. DUROTEP MT PATCH [Suspect]
     Indication: PAIN
     Route: 062
  2. DUROTEP MT PATCH [Suspect]
     Indication: DECUBITUS ULCER
     Route: 062

REACTIONS (1)
  - DRUG PRESCRIBING ERROR [None]
